FAERS Safety Report 9670381 (Version 2)
Quarter: 2014Q1

REPORT INFORMATION
  Report Type: Spontaneous
  Country: FR (occurrence: FR)
  Receive Date: 20131105
  Receipt Date: 20140204
  Transmission Date: 20141002
  Serious: Yes (Life-Threatening, Hospitalization)
  Sender: FDA-Public Use
  Company Number: FR-ROCHE-1298064

PATIENT
  Age: 63 Year
  Sex: Female

DRUGS (5)
  1. AVASTIN [Suspect]
     Indication: HEREDITARY HAEMORRHAGIC TELANGIECTASIA
     Route: 042
     Dates: start: 20130701
  2. LYRICA [Concomitant]
     Route: 048
  3. OXYNORM [Concomitant]
     Route: 048
  4. IMOVANE [Concomitant]
     Route: 048
  5. INEXIUM [Concomitant]
     Route: 048

REACTIONS (2)
  - Pulmonary embolism [Recovered/Resolved]
  - Budd-Chiari syndrome [Recovering/Resolving]
